FAERS Safety Report 13704128 (Version 1)
Quarter: 2017Q2

REPORT INFORMATION
  Report Type: Report from Study
  Country: US (occurrence: US)
  Receive Date: 20170630
  Receipt Date: 20170630
  Transmission Date: 20170830
  Serious: Yes (Life-Threatening)
  Sender: FDA-Public Use
  Company Number: PHEH2017US019519

PATIENT
  Sex: Male

DRUGS (1)
  1. COSENTYX [Suspect]
     Active Substance: SECUKINUMAB
     Indication: PRODUCT USED FOR UNKNOWN INDICATION
     Dosage: 300 MG, QMO
     Route: 065

REACTIONS (13)
  - Incoherent [Unknown]
  - Feeling abnormal [Unknown]
  - Chest pain [Unknown]
  - Haemoptysis [Unknown]
  - Pharyngeal oedema [Unknown]
  - Dysarthria [Unknown]
  - Stress [Unknown]
  - Gingival disorder [Unknown]
  - Suicidal ideation [Unknown]
  - Daydreaming [Unknown]
  - Lung disorder [Unknown]
  - Confusional state [Unknown]
  - Abdominal distension [Unknown]
